FAERS Safety Report 21631682 (Version 3)
Quarter: 2022Q4

REPORT INFORMATION
  Report Type: Spontaneous
  Country: US (occurrence: US)
  Receive Date: 20221123
  Receipt Date: 20221219
  Transmission Date: 20230113
  Serious: No
  Sender: FDA-Public Use
  Company Number: US-Calliditas-2022CAL00500

PATIENT
  Age: 59 Year
  Sex: Male

DRUGS (11)
  1. TARPEYO [Suspect]
     Active Substance: BUDESONIDE
     Indication: IgA nephropathy
     Dosage: 16 MG (4 CAPSULES) DAILY
     Route: 048
     Dates: start: 20221021
  2. TRULICITY [Concomitant]
     Active Substance: DULAGLUTIDE
  3. LANTUS [Concomitant]
     Active Substance: INSULIN GLARGINE
  4. SODIUM BICARBONATE [Concomitant]
     Active Substance: SODIUM BICARBONATE
  5. PRAVASTATIN [Concomitant]
     Active Substance: PRAVASTATIN
  6. METOPROLOL [Concomitant]
     Active Substance: METOPROLOL
  7. FARXIGA [Concomitant]
     Active Substance: DAPAGLIFLOZIN PROPANEDIOL
  8. LISINOPRIL [Concomitant]
     Active Substance: LISINOPRIL
  9. ASPIRIN [Concomitant]
     Active Substance: ASPIRIN
  10. EPLERENONE [Concomitant]
     Active Substance: EPLERENONE
  11. ESOMEPRAZOLE [Concomitant]
     Active Substance: ESOMEPRAZOLE

REACTIONS (1)
  - Blood glucose increased [Not Recovered/Not Resolved]

NARRATIVE: CASE EVENT DATE: 20221101
